FAERS Safety Report 8363809-8 (Version None)
Quarter: 2012Q2

REPORT INFORMATION
  Report Type: 
  Country: None (occurrence: None)
  Receive Date: 20120515
  Receipt Date: 20120515
  Transmission Date: 20120825
  Serious: No
  Sender: FDA-Public Use
  Company Number: None

PATIENT
  Age: 79 Year
  Sex: Male
  Weight: 88.9 kg

DRUGS (1)
  1. MULTI-VITAMINS [Suspect]
     Indication: AGE-RELATED MACULAR DEGENERATION
     Dosage: 2 TAB BID PO
     Route: 048
     Dates: start: 20110718, end: 20111020

REACTIONS (3)
  - PAPULE [None]
  - XANTHOMA [None]
  - HYPERTRIGLYCERIDAEMIA [None]
